FAERS Safety Report 9633455 (Version 2)
Quarter: 2014Q1

REPORT INFORMATION
  Report Type: Spontaneous
  Country: US (occurrence: US)
  Receive Date: 20131021
  Receipt Date: 20140212
  Transmission Date: 20141002
  Serious: Yes (Other)
  Sender: FDA-Public Use
  Company Number: US-SA-2013SA105295

PATIENT
  Age: 55 Year
  Sex: Female

DRUGS (1)
  1. FABRAZYME [Suspect]
     Indication: FABRY^S DISEASE
     Route: 042
     Dates: start: 20050412

REACTIONS (4)
  - Breast cancer [Unknown]
  - Central nervous system lesion [Not Recovered/Not Resolved]
  - Narcolepsy [Not Recovered/Not Resolved]
  - Musculoskeletal disorder [Unknown]
